FAERS Safety Report 21365301 (Version 2)
Quarter: 2022Q4

REPORT INFORMATION
  Report Type: Spontaneous
  Country: US (occurrence: MX)
  Receive Date: 20220922
  Receipt Date: 20221122
  Transmission Date: 20230113
  Serious: No
  Sender: FDA-Public Use
  Company Number: US-BRISTOL-MYERS SQUIBB COMPANY-2022-110157

PATIENT
  Sex: Female

DRUGS (1)
  1. APIXABAN [Suspect]
     Active Substance: APIXABAN
     Indication: Product used for unknown indication
     Route: 065

REACTIONS (1)
  - Product dispensing error [Unknown]
